FAERS Safety Report 5820861-9 (Version None)
Quarter: 2008Q3

REPORT INFORMATION
  Report Type: 
  Country: None (occurrence: None)
  Receive Date: 20080724
  Receipt Date: 20080714
  Transmission Date: 20090109
  Serious: No
  Sender: FDA-Public Use
  Company Number: US-BAYER-200812884BCC

PATIENT
  Age: 17 Year
  Sex: Female
  Weight: 113 kg

DRUGS (4)
  1. ALEVE [Suspect]
     Indication: SELF INJURIOUS BEHAVIOUR
     Route: 048
     Dates: start: 20080714
  2. LAMICTAL [Concomitant]
  3. ZONISAMIDE [Concomitant]
  4. LEVOTHYROXINE SODIUM [Concomitant]

REACTIONS (1)
  - VOMITING [None]
